FAERS Safety Report 5119863-X (Version None)
Quarter: 2006Q4

REPORT INFORMATION
  Report Type: 
  Country: None (occurrence: None)
  Receive Date: 20061003
  Receipt Date: 20060704
  Transmission Date: 20070319
  Serious: Yes (Hospitalization)
  Sender: FDA-Public Use
  Company Number: BE-BOEHRINGER INGELHEIM PHARMACEUTICALS, INC.-2006-BL-00159BL

PATIENT
  Sex: Male
  Weight: 83 kg

DRUGS (4)
  1. TPV/RTV CO-ADMIN [Suspect]
     Indication: HIV INFECTION
     Dosage: 250/100 MG X 4
     Route: 048
     Dates: start: 20060328
  2. VIREAD [Concomitant]
     Indication: HIV INFECTION
     Route: 048
     Dates: start: 20060328
  3. EPIVIR [Concomitant]
     Indication: HIV INFECTION
     Route: 048
     Dates: start: 20060328
  4. BACTRIM DS [Concomitant]
     Indication: PNEUMOCYSTIS JIROVECI PNEUMONIA
     Route: 048
     Dates: start: 20060321

REACTIONS (2)
  - OESOPHAGITIS [None]
  - RENAL IMPAIRMENT [None]
